FAERS Safety Report 4325894-X (Version None)
Quarter: 2004Q1

REPORT INFORMATION
  Report Type: 
  Country: None (occurrence: None)
  Receive Date: 20040329
  Receipt Date: 20021014
  Transmission Date: 20041129
  Serious: Yes (Hospitalization, Disabling, Other)
  Sender: FDA-Public Use
  Company Number: US-MERCK-0210USA01482

PATIENT
  Age: 58 Year
  Sex: Female
  Weight: 75 kg

DRUGS (15)
  1. [THERAPY UNSPECIFIED] [Concomitant]
     Route: 047
  2. TYLENOL (CAPLET) [Concomitant]
     Route: 065
     Dates: start: 19900120, end: 20030601
  3. ASPIRIN [Concomitant]
     Indication: PROPHYLAXIS
     Route: 065
  4. ASPIRIN [Concomitant]
     Indication: PAIN
     Route: 065
  5. LIPITOR [Concomitant]
     Route: 065
     Dates: start: 20000101, end: 20030727
  6. PREMARIN [Concomitant]
     Indication: MENOPAUSE
     Route: 065
     Dates: start: 19960101, end: 20020101
  7. MICRONASE [Concomitant]
     Route: 065
  8. MOTRIN [Concomitant]
     Route: 065
     Dates: start: 19900120, end: 20030601
  9. SYNTHROID [Concomitant]
     Indication: THYROID DISORDER
     Route: 065
  10. SYNTHROID [Concomitant]
     Route: 065
  11. GLUCOPHAGE [Concomitant]
     Route: 065
     Dates: start: 20000101, end: 20010327
  12. NAPROXEN [Concomitant]
     Route: 065
     Dates: start: 19900120, end: 20030601
  13. NITROGLYCERIN [Concomitant]
     Route: 065
     Dates: start: 20000428
  14. REFRESH [Concomitant]
     Route: 047
  15. VIOXX [Suspect]
     Indication: ARTHRALGIA
     Route: 048
     Dates: start: 20000101, end: 20011201

REACTIONS (35)
  - ABDOMINAL PAIN LOWER [None]
  - ABDOMINAL TENDERNESS [None]
  - ADVERSE EVENT [None]
  - ANGINA UNSTABLE [None]
  - ANXIETY [None]
  - ATRIOVENTRICULAR BLOCK [None]
  - BACK PAIN [None]
  - BLOOD GLUCOSE INCREASED [None]
  - BUNDLE BRANCH BLOCK LEFT [None]
  - CATARACT [None]
  - CHEST PAIN [None]
  - CONSTIPATION [None]
  - COUGH [None]
  - DIARRHOEA [None]
  - DIPLOPIA [None]
  - DYSPNOEA [None]
  - EMOTIONAL DISTRESS [None]
  - ERUCTATION [None]
  - EYE DISORDER [None]
  - FAECES DISCOLOURED [None]
  - FATIGUE [None]
  - FEELING COLD [None]
  - FLATULENCE [None]
  - HOARSENESS [None]
  - HOT FLUSH [None]
  - INFLAMMATORY BOWEL DISEASE [None]
  - INJURY [None]
  - NAUSEA [None]
  - PAIN [None]
  - PALPITATIONS [None]
  - PINGUECULA [None]
  - SINUS BRADYCARDIA [None]
  - SOMNOLENCE [None]
  - STRESS SYMPTOMS [None]
  - UPPER RESPIRATORY TRACT INFECTION [None]
